FAERS Safety Report 13268576 (Version 5)
Quarter: 2017Q3

REPORT INFORMATION
  Report Type: Report from Study
  Country: US (occurrence: US)
  Receive Date: 20170224
  Receipt Date: 20170713
  Transmission Date: 20171127
  Serious: Yes (Hospitalization)
  Sender: FDA-Public Use
  Company Number: US-JNJFOC-20170219497

PATIENT
  Age: 23 Year
  Sex: Female
  Weight: 50.9 kg

DRUGS (3)
  1. 6-MP [Concomitant]
     Active Substance: MERCAPTOPURINE
     Route: 065
  2. REMICADE [Suspect]
     Active Substance: INFLIXIMAB
     Indication: INFLAMMATORY BOWEL DISEASE
     Route: 042
     Dates: start: 20160421, end: 20161128
  3. BUDESONIDE. [Concomitant]
     Active Substance: BUDESONIDE
     Route: 065

REACTIONS (3)
  - Abdominal abscess [Recovered/Resolved]
  - Intestinal stenosis [Recovered/Resolved]
  - Enterocolonic fistula [Recovered/Resolved]

NARRATIVE: CASE EVENT DATE: 20161207
